FAERS Safety Report 5489814-7 (Version None)
Quarter: 2007Q4

REPORT INFORMATION
  Report Type: 
  Country: None (occurrence: None)
  Receive Date: 20071007
  Receipt Date: 20071007
  Transmission Date: 20080405
  Serious: No
  Sender: FDA-Public Use
  Company Number: None

PATIENT
  Age: 34 Year
  Sex: Male

DRUGS (8)
  1. ZOLOFT [Suspect]
     Dates: start: 20060223, end: 20060316
  2. TRUVADA [Concomitant]
  3. ATAZANAVIR SULFATE [Concomitant]
  4. RITONAVIR [Concomitant]
  5. AZITHROMYCIN [Concomitant]
  6. BACTRIM DS [Concomitant]
  7. VITAMIN CAP [Concomitant]
  8. ITRACONAZOLE [Concomitant]

REACTIONS (1)
  - LIVER INJURY [None]
